FAERS Safety Report 23942922 (Version 1)
Quarter: 2024Q2

REPORT INFORMATION
  Report Type: Spontaneous
  Country: CN (occurrence: CN)
  Receive Date: 20240605
  Receipt Date: 20240605
  Transmission Date: 20240716
  Serious: Yes (Other)
  Sender: FDA-Public Use
  Company Number: CN-SA-SAC20240605000281

PATIENT
  Age: 67 Year
  Sex: Female
  Weight: 60 kg

DRUGS (2)
  1. ELOXATIN [Suspect]
     Active Substance: OXALIPLATIN
     Indication: Symptomatic treatment
     Dosage: 150 MG, QD
     Route: 041
     Dates: start: 20240517, end: 20240517
  2. DEXTROSE [Concomitant]
     Active Substance: DEXTROSE\DEXTROSE MONOHYDRATE
     Indication: Symptomatic treatment
     Dosage: 500 ML
     Route: 041
     Dates: start: 20240517

REACTIONS (3)
  - Hypersensitivity [Recovered/Resolved]
  - Hyperhidrosis [Recovered/Resolved]
  - Flushing [Recovered/Resolved]

NARRATIVE: CASE EVENT DATE: 20240517
